FAERS Safety Report 6524794-4 (Version None)
Quarter: 2010Q1

REPORT INFORMATION
  Report Type: 
  Country: None (occurrence: None)
  Receive Date: 20100104
  Receipt Date: 20091221
  Transmission Date: 20100710
  Serious: Yes (Other)
  Sender: FDA-Public Use
  Company Number: US-ELI_LILLY_AND_COMPANY-US200912004823

PATIENT
  Sex: Female
  Weight: 90.703 kg

DRUGS (2)
  1. FLUOXETINE HYDROCHLORIDE [Suspect]
     Indication: DEPRESSION
     Dosage: UNK, UNKNOWN
     Route: 065
  2. MERIDIA [Concomitant]
     Indication: WEIGHT CONTROL
     Dates: start: 20040101, end: 20070101

REACTIONS (4)
  - EYE DISORDER [None]
  - OPTIC ISCHAEMIC NEUROPATHY [None]
  - RETINAL VEIN OCCLUSION [None]
  - VISUAL FIELD DEFECT [None]
